FAERS Safety Report 21110401 (Version 1)
Quarter: 2022Q3

REPORT INFORMATION
  Report Type: Spontaneous
  Country: CN (occurrence: None)
  Receive Date: 20220721
  Receipt Date: 20220721
  Transmission Date: 20221027
  Serious: Yes (Other)
  Sender: FDA-Public Use
  Company Number: CN-ROCHE-3140159

PATIENT
  Age: 71 Year
  Sex: Female

DRUGS (1)
  1. ALECENSA [Suspect]
     Active Substance: ALECTINIB HYDROCHLORIDE
     Indication: Lung neoplasm malignant
     Route: 065
     Dates: start: 20220601, end: 20220610

REACTIONS (5)
  - Myocardial necrosis marker increased [Unknown]
  - Vomiting [Unknown]
  - Diarrhoea [Unknown]
  - Muscle operation [Unknown]
  - Myalgia [Unknown]

NARRATIVE: CASE EVENT DATE: 20220610
